FAERS Safety Report 10720845 (Version 1)
Quarter: 2015Q1

REPORT INFORMATION
  Report Type: Spontaneous
  Country: US (occurrence: US)
  Receive Date: 20150119
  Receipt Date: 20150119
  Transmission Date: 20150721
  Serious: No
  Sender: FDA-Public Use
  Company Number: US-UNITED THERAPEUTICS-UNT-2014-006379

PATIENT
  Age: 45 Year
  Sex: Female
  Weight: 83.9 kg

DRUGS (4)
  1. REVATIO [Concomitant]
     Active Substance: SILDENAFIL CITRATE
     Indication: PRODUCT USED FOR UNKNOWN INDICATION
  2. ASPIRIN. [Concomitant]
     Active Substance: ASPIRIN
     Indication: PRODUCT USED FOR UNKNOWN INDICATION
  3. REMODULIN [Suspect]
     Active Substance: TREPROSTINIL
     Indication: COR PULMONALE CHRONIC
     Dosage: 0.02425 ?G/KG/MIN, CONTINUING
     Route: 058
     Dates: start: 20130927
  4. ORENITRAM [Suspect]
     Active Substance: TREPROSTINIL
     Indication: COR PULMONALE CHRONIC
     Dosage: 4.5 MG, TID
     Route: 048
     Dates: start: 20140829

REACTIONS (3)
  - Headache [Unknown]
  - Defaecation urgency [Unknown]
  - Malaise [Unknown]

NARRATIVE: CASE EVENT DATE: 20140831
